FAERS Safety Report 5536641-8 (Version None)
Quarter: 2007Q4

REPORT INFORMATION
  Report Type: 
  Country: None (occurrence: None)
  Receive Date: 20071206
  Receipt Date: 20070802
  Transmission Date: 20080405
  Serious: Yes (Hospitalization, Other)
  Sender: FDA-Public Use
  Company Number: US-AMGEN-STX237201

PATIENT
  Sex: Female

DRUGS (2)
  1. ENBREL [Suspect]
     Indication: RHEUMATOID ARTHRITIS
     Route: 058
     Dates: start: 19990401
  2. PLAQUENIL [Concomitant]

REACTIONS (7)
  - ANIMAL BITE [None]
  - ARTHRALGIA [None]
  - ARTHROPOD BITE [None]
  - GOUT [None]
  - JOINT SWELLING [None]
  - LOCALISED INFECTION [None]
  - SEPSIS [None]
